FAERS Safety Report 23757541 (Version 5)
Quarter: 2024Q2

REPORT INFORMATION
  Report Type: Spontaneous
  Country: US (occurrence: US)
  Receive Date: 20240418
  Receipt Date: 20240503
  Transmission Date: 20240716
  Serious: Yes (Hospitalization, Other)
  Sender: FDA-Public Use
  Company Number: US-PFIZER INC-PV202400050392

PATIENT
  Age: 68 Year
  Sex: Male

DRUGS (2)
  1. MEKTOVI [Suspect]
     Active Substance: BINIMETINIB
     Indication: Malignant melanoma
     Dosage: 30 MG (2 TABLETS OF 15 MG), TWICE A DAY
     Dates: start: 202311, end: 202312
  2. BRAFTOVI [Suspect]
     Active Substance: ENCORAFENIB
     Indication: Malignant melanoma
     Dosage: 300 MG (4 CAPSULES OF 75 MG), EVERY AM
     Route: 048
     Dates: start: 202311, end: 202312

REACTIONS (3)
  - Illness [Unknown]
  - Spleen disorder [Unknown]
  - Neoplasm progression [Unknown]
